FAERS Safety Report 4794502-6 (Version None)
Quarter: 2005Q4

REPORT INFORMATION
  Report Type: 
  Country: None (occurrence: None)
  Receive Date: 20051011
  Receipt Date: 20050930
  Transmission Date: 20060501
  Serious: Yes (Hospitalization)
  Sender: FDA-Public Use
  Company Number: JP-BRISTOL-MYERS SQUIBB COMPANY-13127170

PATIENT
  Sex: Female

DRUGS (2)
  1. TAXOL [Suspect]
     Indication: GASTRIC CANCER
     Route: 042
     Dates: start: 20050920, end: 20050920
  2. FURTULON [Suspect]
     Route: 048
     Dates: start: 20050921, end: 20050921

REACTIONS (1)
  - OESOPHAGEAL ULCER [None]
